FAERS Safety Report 8316302-2 (Version None)
Quarter: 2012Q2

REPORT INFORMATION
  Report Type: 
  Country: None (occurrence: None)
  Receive Date: 20120427
  Receipt Date: 20120424
  Transmission Date: 20120825
  Serious: No
  Sender: FDA-Public Use
  Company Number: US-PFIZER INC-2012067842

PATIENT
  Sex: Male
  Weight: 86.168 kg

DRUGS (4)
  1. EFFEXOR [Suspect]
     Dosage: UNK
  2. ZOLOFT [Suspect]
     Dosage: UNK
  3. PRISTIQ [Suspect]
     Indication: DEPRESSION
     Dosage: 50 MG, 1X/DAY
     Route: 048
  4. RISPERDAL [Concomitant]
     Dosage: UNK

REACTIONS (2)
  - FLATULENCE [None]
  - DIARRHOEA [None]
